FAERS Safety Report 20363700 (Version 2)
Quarter: 2022Q1

REPORT INFORMATION
  Report Type: Report from Study
  Country: US (occurrence: US)
  Receive Date: 20220121
  Receipt Date: 20220202
  Transmission Date: 20220423
  Serious: Yes (Hospitalization)
  Sender: FDA-Public Use
  Company Number: US-JNJFOC-20220127959

PATIENT
  Age: 76 Year
  Sex: Female
  Weight: 77.1 kg

DRUGS (3)
  1. IBRUTINIB [Suspect]
     Active Substance: IBRUTINIB
     Indication: Chronic lymphocytic leukaemia
     Dosage: (MED KIT 37518, 37519)
     Route: 048
     Dates: start: 20150916
  2. IBRUTINIB [Suspect]
     Active Substance: IBRUTINIB
     Route: 048
     Dates: start: 202103
  3. IBRUTINIB [Suspect]
     Active Substance: IBRUTINIB
     Dosage: CYCLE 14 DAY 1
     Route: 048
     Dates: start: 20211208, end: 20220110

REACTIONS (1)
  - Upper gastrointestinal haemorrhage [Recovered/Resolved]

NARRATIVE: CASE EVENT DATE: 20220111
